FAERS Safety Report 21425978 (Version 1)
Quarter: 2022Q4

REPORT INFORMATION
  Report Type: Spontaneous
  Country: GB (occurrence: GB)
  Receive Date: 20221008
  Receipt Date: 20221008
  Transmission Date: 20230113
  Serious: Yes (Other)
  Sender: FDA-Public Use
  Company Number: None

PATIENT
  Age: 70 Year
  Sex: Male
  Weight: 87 kg

DRUGS (6)
  1. NAPROXEN [Suspect]
     Active Substance: NAPROXEN
     Indication: Product used for unknown indication
     Dosage: 1000 MILLIGRAM DAILY; AFTER MEALS, UNIT DOSE: 500MG, FREQUENCY: TWICE A DAY
     Route: 065
     Dates: start: 20220914
  2. ATORVASTATIN [Concomitant]
     Active Substance: ATORVASTATIN
     Indication: Product used for unknown indication
     Dosage: 1 DOSAGE FORMS DAILY; UNIT DOSE: 1DF, FREQUENCY: ONCE A DAY
     Dates: start: 20220606
  3. FENBID [Concomitant]
     Indication: Product used for unknown indication
     Dosage: APPLY 3 TIMES/DAY
     Dates: start: 20220914
  4. LANSOPRAZOLE [Concomitant]
     Active Substance: LANSOPRAZOLE
     Indication: Product used for unknown indication
     Dosage: 1 DOSAGE FORMS DAILY; PRIOR TO MEALS, UNIT DOSE: 1DF, FREQUENCY: ONCE A DAY
     Dates: start: 20220914
  5. VENTOLIN [Concomitant]
     Active Substance: ALBUTEROL SULFATE
     Indication: Product used for unknown indication
     Dosage: UNIT DOSE: 2DF, DURATION: 204 DAYS
     Route: 055
     Dates: start: 20220104, end: 20220727
  6. ZEROCREAM [Concomitant]
     Indication: Product used for unknown indication
     Dosage: USE AS DIRECTED
     Dates: start: 20220922

REACTIONS (2)
  - Pruritus [Recovered/Resolved]
  - Chest discomfort [Unknown]

NARRATIVE: CASE EVENT DATE: 20220923
